FAERS Safety Report 8516027-4 (Version None)
Quarter: 2012Q3

REPORT INFORMATION
  Report Type: 
  Country: None (occurrence: None)
  Receive Date: 20120717
  Receipt Date: 20120403
  Transmission Date: 20120928
  Serious: No
  Sender: FDA-Public Use
  Company Number: US-NOVEN-12US004412

PATIENT
  Age: 40 Year
  Sex: Male

DRUGS (2)
  1. DILANTIN [Concomitant]
     Indication: CONVULSION
     Dosage: UNK
     Route: 048
  2. FENTANYL [Suspect]
     Indication: BACK PAIN
     Dosage: 100 UG/HR, EVERY 3 DAYS
     Route: 062
     Dates: start: 20120322

REACTIONS (2)
  - INADEQUATE ANALGESIA [None]
  - ANALGESIC DRUG LEVEL BELOW THERAPEUTIC [None]
